FAERS Safety Report 4970233-4 (Version None)
Quarter: 2006Q2

REPORT INFORMATION
  Report Type: 
  Country: None (occurrence: None)
  Receive Date: 20060406
  Receipt Date: 20060325
  Transmission Date: 20061013
  Serious: Yes (Other)
  Sender: FDA-Public Use
  Company Number: 2006042512

PATIENT
  Sex: Female

DRUGS (2)
  1. SOLU-MEDROL [Suspect]
     Indication: DISORDER OF ORBIT
     Dosage: 750 MG (250 MG, 3 IN 1 D), INTRAVENOUS
     Route: 042
  2. ALL OTHER THERAPEUTIC PRODUCTS [Concomitant]

REACTIONS (3)
  - CONDITION AGGRAVATED [None]
  - EYE HAEMORRHAGE [None]
  - EYELID OEDEMA [None]
